FAERS Safety Report 7579075-7 (Version None)
Quarter: 2011Q2

REPORT INFORMATION
  Report Type: 
  Country: None (occurrence: None)
  Receive Date: 20110628
  Receipt Date: 20110617
  Transmission Date: 20111010
  Serious: Yes (Hospitalization, Other)
  Sender: FDA-Public Use
  Company Number: US-NOVOPROD-327381

PATIENT
  Age: 55 Year
  Sex: Female
  Weight: 94.331 kg

DRUGS (4)
  1. SYNTHROID [Concomitant]
     Indication: HYPOTHYROIDISM
     Dosage: UNKNOWN
  2. VICTOZA [Suspect]
     Indication: TYPE 2 DIABETES MELLITUS
     Dosage: .06 MG, QD
     Dates: start: 20110218
  3. VICTOZA [Suspect]
     Dosage: 1.8 MG, QD
     Dates: end: 20110422
  4. VICTOZA [Suspect]
     Dosage: 1.2 MG, QD

REACTIONS (1)
  - GALLBLADDER DISORDER [None]
